FAERS Safety Report 8368102-5 (Version None)
Quarter: 2012Q2

REPORT INFORMATION
  Report Type: 
  Country: None (occurrence: None)
  Receive Date: 20120517
  Receipt Date: 20120516
  Transmission Date: 20120825
  Serious: Yes (Life-Threatening, Hospitalization, Other)
  Sender: FDA-Public Use
  Company Number: US-B.I. PHARMACEUTICALS,INC./RIDGEFIELD-2012-BP-02683BP

PATIENT
  Sex: Female

DRUGS (16)
  1. METFORMIN HCL [Concomitant]
     Dosage: 1000 MG
     Route: 048
  2. METOPROLOL [Concomitant]
     Indication: CARDIAC DISORDER
     Dosage: 50 MG
     Route: 048
  3. MULTI-VITAMIN [Concomitant]
     Indication: SUPPLEMENTATION THERAPY
     Route: 048
  4. PAROXETINE HCL [Concomitant]
     Indication: DEPRESSION
     Dosage: 40 MG
     Route: 048
  5. ADVAIR DISKUS 100/50 [Concomitant]
     Indication: CHRONIC OBSTRUCTIVE PULMONARY DISEASE
     Route: 055
  6. TEMAZEPAM 30MG HS [Concomitant]
     Indication: INSOMNIA
     Dosage: 30 MG
     Route: 048
  7. LEVOTHYROXINE SODIUM [Concomitant]
     Indication: HYPOTHYROIDISM
     Dosage: 75 MCG
     Route: 048
  8. SPIRIVA [Suspect]
     Indication: CHRONIC OBSTRUCTIVE PULMONARY DISEASE
     Dosage: 18 MCG
     Route: 055
     Dates: start: 20100101
  9. RANITIDINE [Concomitant]
     Indication: GASTROOESOPHAGEAL REFLUX DISEASE
     Dosage: 150 MG
     Route: 048
  10. SEROQUEL [Concomitant]
     Indication: INSOMNIA
     Dosage: 1200 MG
     Route: 048
  11. TRAZODONE HCL [Concomitant]
     Indication: DEPRESSION
     Dosage: 100 MG
     Route: 048
  12. PRAVASTATIN [Concomitant]
     Indication: BLOOD CHOLESTEROL INCREASED
     Dosage: 40 MG
     Route: 048
  13. METFORMIN HCL [Concomitant]
     Indication: DIABETES MELLITUS
     Dosage: 500 MG
     Route: 048
  14. HYDROCHLOROTHIAZIDE 12.5 [Concomitant]
     Indication: HYPERTENSION
     Dosage: 12.5 MG
     Route: 048
  15. VENTOLIN [Concomitant]
     Indication: CHRONIC OBSTRUCTIVE PULMONARY DISEASE
     Route: 055
  16. VITAMIN E [Concomitant]
     Indication: SUPPLEMENTATION THERAPY
     Route: 048

REACTIONS (11)
  - CARDIOMYOPATHY [None]
  - COMA [None]
  - JOINT DISLOCATION [None]
  - SUDDEN CARDIAC DEATH [None]
  - ANKLE FRACTURE [None]
  - ADVERSE DRUG REACTION [None]
  - CARDIAC FAILURE CONGESTIVE [None]
  - RESPIRATORY FAILURE [None]
  - CARDIAC ARREST [None]
  - FALL [None]
  - BRONCHIAL DISORDER [None]
